FAERS Safety Report 9305514 (Version 2)
Quarter: 2015Q1

REPORT INFORMATION
  Report Type: Spontaneous
  Country: US (occurrence: US)
  Receive Date: 20130523
  Receipt Date: 20150331
  Transmission Date: 20150721
  Serious: Yes (Other)
  Sender: FDA-Public Use
  Company Number: US-ASTRAZENECA-2013SE34383

PATIENT
  Age: 79 Year
  Sex: Male
  Weight: 70.3 kg

DRUGS (36)
  1. ZANTAC [Concomitant]
     Active Substance: RANITIDINE HYDROCHLORIDE
     Indication: GASTROOESOPHAGEAL REFLUX DISEASE
     Route: 048
     Dates: start: 2012
  2. VITAMIN D [Concomitant]
     Active Substance: CHOLECALCIFEROL
     Indication: SUPPLEMENTATION THERAPY
     Route: 048
  3. BRILINTA [Suspect]
     Active Substance: TICAGRELOR
     Indication: CARDIOVASCULAR EVENT PROPHYLAXIS
     Route: 048
     Dates: start: 20130514
  4. CARVEDILOL. [Concomitant]
     Active Substance: CARVEDILOL
     Route: 048
     Dates: start: 201210
  5. BABY ASPIRIN [Concomitant]
     Active Substance: ASPIRIN
     Indication: CARDIAC DISORDER
     Route: 048
     Dates: start: 201212
  6. ZANTAC [Concomitant]
     Active Substance: RANITIDINE HYDROCHLORIDE
     Indication: HYPERCHLORHYDRIA
     Route: 048
     Dates: start: 2014
  7. SAW PALMETTO [Concomitant]
     Active Substance: SAW PALMETTO
     Indication: PROSTATOMEGALY
     Route: 048
  8. ZANTAC [Concomitant]
     Active Substance: RANITIDINE HYDROCHLORIDE
     Indication: GASTROOESOPHAGEAL REFLUX DISEASE
     Route: 048
     Dates: start: 2014
  9. SAW PALMETTO [Concomitant]
     Active Substance: SAW PALMETTO
     Indication: PROSTATOMEGALY
     Route: 048
  10. SAW PALMETTO [Concomitant]
     Active Substance: SAW PALMETTO
     Indication: PROSTATIC DISORDER
     Route: 048
  11. NEXIUM [Suspect]
     Active Substance: ESOMEPRAZOLE MAGNESIUM
     Indication: HYPERCHLORHYDRIA
     Route: 048
     Dates: start: 2009
  12. BRILINTA [Suspect]
     Active Substance: TICAGRELOR
     Indication: CARDIOVASCULAR EVENT PROPHYLAXIS
     Route: 048
     Dates: start: 201210, end: 20130508
  13. SAW PALMETTO [Concomitant]
     Active Substance: SAW PALMETTO
     Indication: PROSTATIC DISORDER
     Route: 048
  14. LOSARTAN [Concomitant]
     Active Substance: LOSARTAN
     Indication: CARDIAC DISORDER
     Route: 048
     Dates: start: 201212
  15. CARAFATE LIQUID [Concomitant]
     Indication: HYPERCHLORHYDRIA
     Dosage: 1 GM AC
     Route: 048
     Dates: start: 201212
  16. NEXIUM [Suspect]
     Active Substance: ESOMEPRAZOLE MAGNESIUM
     Indication: GASTRITIS
     Route: 048
     Dates: start: 2009
  17. NEXIUM [Suspect]
     Active Substance: ESOMEPRAZOLE MAGNESIUM
     Indication: GASTRITIS
     Route: 048
     Dates: start: 2011
  18. CENTRUM MULTIVITAMIN [Concomitant]
     Indication: HYPOVITAMINOSIS
     Dosage: 1 VITAMIN DAILY
     Route: 048
  19. VITAMIN D [Concomitant]
     Active Substance: CHOLECALCIFEROL
     Indication: SUPPLEMENTATION THERAPY
     Route: 048
  20. RANEXA [Concomitant]
     Active Substance: RANOLAZINE
     Indication: ANTICOAGULANT THERAPY
     Route: 048
     Dates: start: 201210
  21. LOSARTAN [Concomitant]
     Active Substance: LOSARTAN
     Indication: CARDIAC DISORDER
     Route: 048
     Dates: start: 201210
  22. ANTIBIOTIC TREATMENT FOR TOOTH [Concomitant]
     Indication: INFECTION
     Dosage: UNKNOWN UNK
     Route: 048
     Dates: start: 20130430, end: 20130506
  23. NEXIUM [Suspect]
     Active Substance: ESOMEPRAZOLE MAGNESIUM
     Indication: BARRETT^S OESOPHAGUS
     Route: 048
     Dates: start: 2011
  24. ZANTAC [Concomitant]
     Active Substance: RANITIDINE HYDROCHLORIDE
     Indication: HYPERCHLORHYDRIA
     Route: 048
     Dates: start: 2012
  25. BABY ASPIRIN [Concomitant]
     Active Substance: ASPIRIN
     Indication: CARDIAC DISORDER
     Route: 048
     Dates: start: 201210
  26. ATORVASTATIN [Concomitant]
     Active Substance: ATORVASTATIN
     Indication: BLOOD CHOLESTEROL INCREASED
     Route: 048
     Dates: start: 201212
  27. RANEXA [Concomitant]
     Active Substance: RANOLAZINE
     Indication: EMBOLISM
     Route: 048
     Dates: start: 201210
  28. RANEXA [Concomitant]
     Active Substance: RANOLAZINE
     Indication: ANTICOAGULANT THERAPY
     Route: 048
     Dates: start: 201212
  29. ANTIBIOTIC TREATMENT FOR TOOTH [Concomitant]
     Indication: INFECTION
     Route: 048
  30. CARAFATE LIQUID [Concomitant]
     Indication: BARRETT^S OESOPHAGUS
     Dosage: 1 GM AC
     Route: 048
     Dates: start: 201212
  31. NEXIUM [Suspect]
     Active Substance: ESOMEPRAZOLE MAGNESIUM
     Indication: BARRETT^S OESOPHAGUS
     Route: 048
     Dates: start: 2009
  32. NEXIUM [Suspect]
     Active Substance: ESOMEPRAZOLE MAGNESIUM
     Indication: HYPERCHLORHYDRIA
     Route: 048
     Dates: start: 2011
  33. CARVEDILOL. [Concomitant]
     Active Substance: CARVEDILOL
     Route: 048
     Dates: start: 2012
  34. ATORVASTATIN [Concomitant]
     Active Substance: ATORVASTATIN
     Indication: BLOOD CHOLESTEROL INCREASED
     Route: 048
     Dates: start: 201210
  35. RANEXA [Concomitant]
     Active Substance: RANOLAZINE
     Indication: EMBOLISM
     Route: 048
     Dates: start: 201212
  36. SENSIPAR [Concomitant]
     Active Substance: CINACALCET HYDROCHLORIDE
     Indication: MINERAL SUPPLEMENTATION
     Dates: start: 201503

REACTIONS (12)
  - Myocardial infarction [Unknown]
  - Blood calcium increased [Unknown]
  - Parathyroid tumour benign [Unknown]
  - Gingival bleeding [Unknown]
  - Iron deficiency [Unknown]
  - Faeces discoloured [Recovered/Resolved]
  - Bladder cyst [Unknown]
  - Hypotension [Unknown]
  - Toothache [Recovered/Resolved]
  - Tooth infection [Recovered/Resolved]
  - Memory impairment [Unknown]
  - Product use issue [Unknown]

NARRATIVE: CASE EVENT DATE: 2011
